FAERS Safety Report 5581340-X (Version None)
Quarter: 2008Q1

REPORT INFORMATION
  Report Type: 
  Country: None (occurrence: None)
  Receive Date: 20080104
  Receipt Date: 20071226
  Transmission Date: 20080703
  Serious: Yes (Hospitalization)
  Sender: FDA-Public Use
  Company Number: PHBS2007JP21528

PATIENT
  Age: 57 Year
  Sex: Male

DRUGS (4)
  1. GLIMICRON [Suspect]
  2. BASEN [Suspect]
     Indication: DIABETES MELLITUS
     Dates: start: 20070801
  3. INSULIN [Concomitant]
  4. FASTIC [Suspect]
     Indication: DIABETES MELLITUS
     Dosage: 270 MG, QD
     Route: 048
     Dates: start: 20070801

REACTIONS (2)
  - HEPATIC FUNCTION ABNORMAL [None]
  - LYMPHOCYTE STIMULATION TEST [None]
